FAERS Safety Report 5932432-4 (Version None)
Quarter: 2008Q4

REPORT INFORMATION
  Report Type: 
  Country: None (occurrence: None)
  Receive Date: 20081009
  Receipt Date: 20071003
  Transmission Date: 20090506
  Serious: Yes (Other)
  Sender: FDA-Public Use
  Company Number: PHEH2007US12524

PATIENT
  Age: 67 Year
  Sex: Female
  Weight: 48.5 kg

DRUGS (2)
  1. ZOMETA [Suspect]
     Indication: METASTASES TO BONE
     Dosage: 4 MG TO 3 MG MONTHLY, INTRAVENOUS
     Route: 042
     Dates: start: 20060607, end: 20070215
  2. SUTENT [Concomitant]

REACTIONS (11)
  - BONE DISORDER [None]
  - ERYTHEMA [None]
  - IMPAIRED HEALING [None]
  - LYMPH NODE PAIN [None]
  - LYMPHADENOPATHY [None]
  - ORAL DISORDER [None]
  - OSTEONECROSIS [None]
  - PAIN [None]
  - SWELLING [None]
  - TOOTH EXTRACTION [None]
  - WOUND DEHISCENCE [None]
